FAERS Safety Report 11649433 (Version 3)
Quarter: 2015Q4

REPORT INFORMATION
  Report Type: Spontaneous
  Country: US (occurrence: US)
  Receive Date: 20151021
  Receipt Date: 20151211
  Transmission Date: 20160304
  Serious: Yes (Hospitalization)
  Sender: FDA-Public Use
  Company Number: US-GLAXOSMITHKLINE-US2015147998

PATIENT
  Sex: Female

DRUGS (13)
  1. ALENYS [Concomitant]
     Active Substance: FLUTICASONE FUROATE
  2. BUMETANIDE. [Concomitant]
     Active Substance: BUMETANIDE
     Dosage: UNK
  3. VENTOLIN HFA [Concomitant]
     Active Substance: ALBUTEROL SULFATE
  4. LEVOTHYROXINE SODIUM HYDRATE [Concomitant]
  5. OMEPRAZOLE. [Concomitant]
     Active Substance: OMEPRAZOLE
  6. TOPIRAMATE. [Concomitant]
     Active Substance: TOPIRAMATE
  7. ADVAIR DISKUS [Suspect]
     Active Substance: FLUTICASONE PROPIONATE\SALMETEROL XINAFOATE
     Indication: ASTHMA
     Dosage: UNK, PRN
     Route: 055
  8. TANZEUM [Concomitant]
     Active Substance: ALBIGLUTIDE
  9. LEVOCETIRIZINE HYDROCHLORIDE [Concomitant]
     Active Substance: LEVOCETIRIZINE HYDROCHLORIDE
  10. BENAZEPRIL HYDROCHLORIDE. [Concomitant]
     Active Substance: BENAZEPRIL HYDROCHLORIDE
  11. PIOGLITAZONE. [Concomitant]
     Active Substance: PIOGLITAZONE
  12. MONTELUKAST SODIUM. [Concomitant]
     Active Substance: MONTELUKAST SODIUM
  13. ADVAIR DISKUS [Suspect]
     Active Substance: FLUTICASONE PROPIONATE\SALMETEROL XINAFOATE
     Indication: BRONCHITIS
     Dosage: 1 PUFF(S), BID
     Route: 055

REACTIONS (8)
  - Eye disorder [Not Recovered/Not Resolved]
  - Bronchitis [Recovered/Resolved]
  - Multiple allergies [Not Recovered/Not Resolved]
  - Drug ineffective [Unknown]
  - Dyspnoea [Unknown]
  - Product taste abnormal [Unknown]
  - Product quality issue [Unknown]
  - Inappropriate schedule of drug administration [Unknown]
